FAERS Safety Report 19988908 (Version 1)
Quarter: 2021Q4

REPORT INFORMATION
  Report Type: Spontaneous
  Country: NL (occurrence: NL)
  Receive Date: 20211024
  Receipt Date: 20211024
  Transmission Date: 20220303
  Serious: Yes (Death, Hospitalization)
  Sender: FDA-Public Use
  Company Number: None

PATIENT
  Age: 64 Year
  Sex: Male
  Weight: 90 kg

DRUGS (18)
  1. METFORMIN [Suspect]
     Active Substance: METFORMIN HYDROCHLORIDE
     Indication: Product used for unknown indication
     Dosage: UNK, NEEM 1.000 MG IN VIA DE MOND 2 KEER PER DAG
     Route: 065
  2. NARATRIPTAN [Concomitant]
     Active Substance: NARATRIPTAN HYDROCHLORIDE
     Indication: Product used for unknown indication
     Dosage: UNK, NEEM 2,5 MG IN VIA DE MOND ZONODIG 2 KEER PER DAG VOOR MIGRAINE
     Route: 065
  3. SIMVASTATIN [Concomitant]
     Active Substance: SIMVASTATIN
     Indication: Product used for unknown indication
     Dosage: UNK, NEEM 40 MG IN VIA DE MOND ELKE AVOND.
     Route: 065
  4. LISINOPRIL HYDROCHLORTHIAZIDE SANDOZ [Concomitant]
     Indication: Product used for unknown indication
     Dosage: UNK, NEEM 1 TABLET IN VIA DE MOND DAGELIJKS. 90 TABLET 4
     Route: 065
  5. SPIRONOLACTONE [Concomitant]
     Active Substance: SPIRONOLACTONE
     Indication: Product used for unknown indication
     Dosage: UNK, NEEM 1 TABLET IN VIA DE MOND DAGELIJKS. 90 TABLET 3
     Route: 065
  6. RIVAROXABAN [Concomitant]
     Active Substance: RIVAROXABAN
     Indication: Product used for unknown indication
     Dosage: UNK, NEEM 1 TABLET IN VIA DE MOND DAGELIJKS.
     Route: 065
  7. ZOPICLONE [Concomitant]
     Active Substance: ZOPICLONE
     Indication: Product used for unknown indication
     Dosage: UNK, NEEM 7,5 MG IN VIA DE MOND ELKE AVOND.
     Route: 065
  8. TEMAZEPAM [Concomitant]
     Active Substance: TEMAZEPAM
     Indication: Product used for unknown indication
     Dosage: UNK
     Route: 065
  9. CLOPIDOGREL [Concomitant]
     Active Substance: CLOPIDOGREL BISULFATE
     Indication: Product used for unknown indication
     Dosage: UNK
     Route: 065
  10. TAMSULOSIN HYDROCHLORIDE [Concomitant]
     Active Substance: TAMSULOSIN HYDROCHLORIDE
     Indication: Product used for unknown indication
     Dosage: UNK, NEEM 0,4MG IN VIA DE MOND DAGELIJKS
     Route: 065
  11. CARVEDILOL [Concomitant]
     Active Substance: CARVEDILOL
     Indication: Product used for unknown indication
     Dosage: UNK, NEEM 25 MG IN VIA DE MOND 2 KEER PER DAG TIJDENS DE MAALTIJD GEDURENDE 360 DAGEN. 180 TABLET 3
     Route: 065
  12. FOLIC ACID [Concomitant]
     Active Substance: FOLIC ACID
     Indication: Product used for unknown indication
     Dosage: UNK, NEEM 0,5 MG IN VIA DE MOND DAGELIJKS
     Route: 065
  13. THIAMINE [Concomitant]
     Active Substance: THIAMINE
     Indication: Product used for unknown indication
     Dosage: UNK, NEEM 1 TABLET IN VIA DE MOND DAGELIJKS. 30 TABLET 0
     Route: 065
  14. FUROSEMIDE [Concomitant]
     Active Substance: FUROSEMIDE
     Indication: Product used for unknown indication
     Dosage: UNK, NEEM 1 TABLET IN VIA DE MOND DAGELIJKS. 90 TABLET 3
     Route: 065
  15. VENLAFAXINE [Concomitant]
     Active Substance: VENLAFAXINE HYDROCHLORIDE
     Indication: Product used for unknown indication
     Dosage: UNK, NEEM 300 MG IN VIA DE MOND DAGELIJKS
     Route: 065
  16. DAPAGLIFLOZIN [Concomitant]
     Active Substance: DAPAGLIFLOZIN
     Indication: Product used for unknown indication
     Dosage: UNK, EEM 1 TABLET IN VIA DE MOND DAGELIJKS
     Route: 065
  17. OLANZAPINE [Concomitant]
     Active Substance: OLANZAPINE
     Indication: Product used for unknown indication
     Dosage: UNK, NEEM 5 MG IN VIA DE MOND DAGELIJKS
     Route: 065
  18. DIAZEPAM [Concomitant]
     Active Substance: DIAZEPAM
     Indication: Product used for unknown indication
     Dosage: UNK,NEEM 1 TABLET IN VIA DE MOND 3 KEER PER DAG. 30 TABLET 0
     Route: 065

REACTIONS (4)
  - Hyperkalaemia [Fatal]
  - Malaise [Fatal]
  - Cardiac arrest [Fatal]
  - Cardiac asthma [Fatal]

NARRATIVE: CASE EVENT DATE: 20210418
